FAERS Safety Report 9472448 (Version 3)
Quarter: 2017Q4

REPORT INFORMATION
  Report Type: Spontaneous
  Country: US (occurrence: US)
  Receive Date: 20130823
  Receipt Date: 20171002
  Transmission Date: 20180321
  Serious: Yes (Hospitalization, Other)
  Sender: FDA-Public Use
  Company Number: US-ROCHE-1265009

PATIENT
  Age: 61 Year
  Sex: Female

DRUGS (5)
  1. OMEGA-3 ACIDS [Concomitant]
     Active Substance: OMEGA-3 FATTY ACIDS
     Route: 065
     Dates: start: 2007
  2. BONIVA [Suspect]
     Active Substance: IBANDRONATE SODIUM
     Indication: OSTEOPOROSIS
     Route: 048
     Dates: start: 20071023, end: 201004
  3. FOSAMAX [Suspect]
     Active Substance: ALENDRONATE SODIUM
     Indication: OSTEOPENIA
  4. FOSAMAX [Suspect]
     Active Substance: ALENDRONATE SODIUM
     Indication: OSTEOPOROSIS
     Route: 048
     Dates: start: 20021210, end: 200710
  5. BONIVA [Suspect]
     Active Substance: IBANDRONATE SODIUM
     Indication: OSTEOPENIA
     Route: 048

REACTIONS (14)
  - Femur fracture [Unknown]
  - Low turnover osteopathy [Unknown]
  - Back pain [Unknown]
  - Anxiety [Unknown]
  - Emotional distress [Unknown]
  - Muscle spasms [Unknown]
  - Cataract [Unknown]
  - Chest pain [Unknown]
  - Musculoskeletal pain [Unknown]
  - Spinal osteoarthritis [Unknown]
  - Osteoarthritis [Unknown]
  - Tachycardia [Unknown]
  - Spondylolisthesis [Unknown]
  - Arthropathy [Unknown]

NARRATIVE: CASE EVENT DATE: 20080331
